FAERS Safety Report 12879023 (Version 6)
Quarter: 2016Q4

REPORT INFORMATION
  Report Type: Report from Study
  Country: DE (occurrence: DE)
  Receive Date: 20161024
  Receipt Date: 20161227
  Transmission Date: 20170207
  Serious: Yes (Life-Threatening, Hospitalization, Other)
  Sender: FDA-Public Use
  Company Number: PHHY2016DE125479

PATIENT
  Age: 48 Year
  Sex: Male

DRUGS (1)
  1. EXTAVIA [Suspect]
     Active Substance: INTERFERON BETA-1B
     Indication: RELAPSING-REMITTING MULTIPLE SCLEROSIS
     Dosage: 1 ML, QOD
     Route: 058
     Dates: start: 2009

REACTIONS (15)
  - Chills [Not Recovered/Not Resolved]
  - Injection site pain [Recovered/Resolved]
  - Poisoning [Unknown]
  - Injection site inflammation [Recovered/Resolved]
  - Injection site erythema [Recovered/Resolved]
  - C-reactive protein increased [Recovered/Resolved]
  - Expanded disability status scale score increased [Unknown]
  - Hypoaesthesia [Unknown]
  - Injection site cellulitis [Recovered/Resolved]
  - Bacterial disease carrier [Unknown]
  - Injection site nodule [Recovered/Resolved]
  - Injection site induration [Recovered/Resolved]
  - Injection site warmth [Recovered/Resolved]
  - Hyperhidrosis [Not Recovered/Not Resolved]
  - Exposure to contaminated device [Unknown]

NARRATIVE: CASE EVENT DATE: 2012
